FAERS Safety Report 6142269-1 (Version None)
Quarter: 2009Q2

REPORT INFORMATION
  Report Type: 
  Country: None (occurrence: None)
  Receive Date: 20090403
  Receipt Date: 20071130
  Transmission Date: 20091009
  Serious: Yes (Death)
  Sender: FDA-Public Use
  Company Number: US-ASTRAZENECA-2006UW11340

PATIENT
  Sex: Female

DRUGS (6)
  1. SEROQUEL [Suspect]
     Indication: DEPRESSION
     Route: 048
     Dates: start: 20010101, end: 20040301
  2. SEROQUEL [Suspect]
     Dosage: 25MG - 100MG
     Route: 048
     Dates: start: 20000822
  3. MOTRIN [Concomitant]
  4. ZOLOFT [Concomitant]
  5. PENTOXIFYLLINE [Concomitant]
  6. LEVAQUIN [Concomitant]

REACTIONS (4)
  - ANAEMIA [None]
  - BACTERIAL SEPSIS [None]
  - CEREBROVASCULAR ACCIDENT [None]
  - DIABETES MELLITUS [None]
